FAERS Safety Report 4658965-9 (Version None)
Quarter: 2005Q2

REPORT INFORMATION
  Report Type: 
  Country: None (occurrence: None)
  Receive Date: 20050511
  Receipt Date: 20010716
  Transmission Date: 20051028
  Serious: Yes (Other)
  Sender: FDA-Public Use
  Company Number: US-ROCHE-264279

PATIENT

DRUGS (3)
  1. HIVID [Suspect]
     Indication: HIV INFECTION
     Dates: start: 19971215
  2. RETROVIR [Suspect]
     Indication: HIV INFECTION
     Dates: start: 19971215
  3. CRIXIVAN [Suspect]
     Indication: HIV INFECTION
     Dates: start: 19971215

REACTIONS (2)
  - DRUG EXPOSURE DURING PREGNANCY [None]
  - FOETAL DISORDER [None]
